FAERS Safety Report 9026849 (Version 1)
Quarter: 2013Q1

REPORT INFORMATION
  Report Type: Spontaneous
  Country: GB (occurrence: None)
  Receive Date: 20130109
  Receipt Date: 20130109
  Transmission Date: 20140127
  Serious: Yes (Life-Threatening, Hospitalization)
  Sender: FDA-Public Use
  Company Number: FK201300006

PATIENT
  Age: 34 Year
  Sex: Female

DRUGS (12)
  1. SUMATRIPTAN [Suspect]
     Indication: PRODUCT USED FOR UNKNOWN INDICATION
     Route: 058
  2. ONDANSETRON (ONDANSETRON) [Suspect]
     Indication: PRODUCT USED FOR UNKNOWN INDICATION
     Route: 048
  3. DOMPERIDONE [Suspect]
     Indication: PRODUCT USED FOR UNKNOWN INDICATION
     Route: 048
  4. PREGABALIN (PREGABALIN) [Suspect]
     Indication: PRODUCT USED FOR UNKNOWN INDICATION
     Route: 048
  5. SERTRALINE (SERTRALINE) (SERTRALINE) [Suspect]
     Indication: PRODUCT USED FOR UNKNOWN INDICATION
  6. BACLOFEN (BACLOFEN) [Concomitant]
  7. DIHYDROERGOTAMINE (DIHYDROERGOTAMINE) [Concomitant]
  8. LAMOTRIGINE (LAMOTRIGINE) [Concomitant]
  9. LORATIDINE [Concomitant]
  10. NAPROXEN (NAPROXEN) [Concomitant]
  11. OMEPRAZOLE (OMEPRAZOLE) [Concomitant]
  12. VERAPAMIL (VERAPAMIL) [Concomitant]

REACTIONS (2)
  - Atrioventricular block [None]
  - Atrioventricular block complete [None]
